FAERS Safety Report 5411091-3 (Version None)
Quarter: 2007Q3

REPORT INFORMATION
  Report Type: 
  Country: None (occurrence: None)
  Receive Date: 20070810
  Receipt Date: 20070803
  Transmission Date: 20080115
  Serious: Yes (Disabling)
  Sender: FDA-Public Use
  Company Number: GB-PURDUE-GBR_2007_0003059

PATIENT
  Age: 56 Year
  Sex: Female

DRUGS (12)
  1. OXYCONTIN [Suspect]
     Indication: POSTOPERATIVE ANALGESIA
     Dosage: 20 MG, BID
     Route: 065
     Dates: end: 20070630
  2. OXYCONTIN [Suspect]
     Dosage: 80 MG, BID
     Route: 048
  3. OXYCONTIN [Suspect]
     Dosage: 40 MG, BID
     Route: 065
     Dates: start: 20070412
  4. FLUOXETINE [Suspect]
     Indication: DEPRESSION
     Dosage: 40 MG, DAILY
     Route: 048
     Dates: start: 20010510
  5. LANSOPRAZOLE [Concomitant]
     Indication: REFLUX OESOPHAGITIS
     Dosage: 30 MG, DAILY
     Route: 048
     Dates: start: 20000203
  6. BENDROFLUMETHIAZIDE [Concomitant]
     Indication: HYPERTENSION
     Dosage: 2.5 MG, DAILY
     Route: 048
     Dates: start: 20040707
  7. RAMIPRIL [Concomitant]
     Indication: HYPERTENSION
     Dosage: 10 MG, DAILY
     Route: 048
     Dates: start: 20040803
  8. DICLOFENAC [Concomitant]
     Dosage: 50 MG, TID
     Route: 065
  9. CODEINE PHOSPHATE AND ACETAMINOPHEN [Suspect]
     Indication: ARTHRALGIA
     Dosage: 2 DF, QID, 30/500
     Route: 048
     Dates: start: 20011112
  10. AMLODIPINE [Concomitant]
     Indication: HYPERTENSION
     Dosage: 5 MG, DAILY
     Route: 048
     Dates: start: 20060118
  11. SIMVASTATIN [Concomitant]
     Indication: HYPERLIPIDAEMIA
     Dosage: 20 MG, DAILY
     Route: 048
     Dates: start: 20060605
  12. TRAMADOL HCL [Suspect]
     Indication: POSTOPERATIVE ANALGESIA
     Dosage: 100 MG, QID
     Route: 048
     Dates: start: 20070412, end: 20070430

REACTIONS (3)
  - DRUG INTERACTION [None]
  - HALLUCINATION [None]
  - MYOCLONUS [None]
